FAERS Safety Report 22181289 (Version 2)
Quarter: 2023Q2

REPORT INFORMATION
  Report Type: Report from Study
  Country: US (occurrence: US)
  Receive Date: 20230406
  Receipt Date: 20230412
  Transmission Date: 20230722
  Serious: Yes (Hospitalization, Other)
  Sender: FDA-Public Use
  Company Number: US-TAKEDA-2023TUS028864

PATIENT
  Sex: Male

DRUGS (2)
  1. MARIBAVIR [Suspect]
     Active Substance: MARIBAVIR
     Indication: Cytomegalovirus infection
     Dosage: 2 DOSAGE FORM, BID
     Route: 048
     Dates: start: 20230314
  2. MARIBAVIR [Suspect]
     Active Substance: MARIBAVIR
     Dosage: UNK
     Route: 065
     Dates: start: 20230304, end: 20230331

REACTIONS (4)
  - Sepsis [Unknown]
  - Insomnia [Unknown]
  - Product dose omission issue [Unknown]
  - Product use issue [Unknown]
